FAERS Safety Report 5635013-5 (Version None)
Quarter: 2008Q1

REPORT INFORMATION
  Report Type: 
  Country: None (occurrence: None)
  Receive Date: 20080131
  Receipt Date: 20071120
  Transmission Date: 20080703
  Serious: No
  Sender: FDA-Public Use
  Company Number: 163-21880-07101166

PATIENT
  Age: 96 Year
  Sex: Female

DRUGS (2)
  1. REVLIMID [Suspect]
     Indication: MYELODYSPLASTIC SYNDROME
     Dosage: 1 EVERY OTHER DAY, ORAL ; 10 MG, 1 IN 1 D
     Route: 048
     Dates: start: 20070806, end: 20070801
  2. REVLIMID [Suspect]
     Indication: MYELODYSPLASTIC SYNDROME
     Dosage: 1 EVERY OTHER DAY, ORAL ; 10 MG, 1 IN 1 D
     Route: 048
     Dates: start: 20070817

REACTIONS (1)
  - OEDEMA PERIPHERAL [None]
